FAERS Safety Report 9394637 (Version 1)
Quarter: 2013Q3

REPORT INFORMATION
  Report Type: Spontaneous
  Country: US (occurrence: None)
  Receive Date: 20130709
  Receipt Date: 20130709
  Transmission Date: 20140515
  Serious: Yes (Disabling, Other)
  Sender: FDA-Public Use
  Company Number: None

PATIENT
  Sex: Male
  Weight: 68.04 kg

DRUGS (6)
  1. LEVOFLOXACIN [Suspect]
     Indication: BRONCHITIS
     Dosage: 1 PILL  1 PER DAY (7 DAYS)   BY MOUTH  4 DAYS
     Route: 048
     Dates: start: 20130416, end: 20130420
  2. LISINOPRIL [Concomitant]
  3. OLANZAPINE [Concomitant]
  4. RISPERIDONE [Concomitant]
  5. LAMOTRIGINE [Concomitant]
  6. MAGNESIUM [Concomitant]

REACTIONS (3)
  - Fatigue [None]
  - Tendon pain [None]
  - Hypersomnia [None]
